FAERS Safety Report 17547812 (Version 1)
Quarter: 2020Q1

REPORT INFORMATION
  Report Type: Report from Study
  Country: None (occurrence: US)
  Receive Date: 20200316
  Receipt Date: 20200316
  Transmission Date: 20200409
  Serious: Yes (Hospitalization)
  Sender: FDA-Public Use
  Company Number: US-ABBVIE-19K-163-3215033-00

PATIENT
  Sex: Male

DRUGS (7)
  1. ARTANE [Concomitant]
     Active Substance: TRIHEXYPHENIDYL HYDROCHLORIDE
     Indication: PARKINSON^S DISEASE
  2. FLUOXETINE [Concomitant]
     Active Substance: FLUOXETINE HYDROCHLORIDE
     Indication: PARKINSON^S DISEASE
  3. RASAGILINE. [Concomitant]
     Active Substance: RASAGILINE
     Indication: PARKINSON^S DISEASE
  4. DUOPA [Suspect]
     Active Substance: CARBIDOPA\LEVODOPA
     Indication: PRODUCT USED FOR UNKNOWN INDICATION
     Route: 050
     Dates: start: 20190930
  5. DUOPA [Suspect]
     Active Substance: CARBIDOPA\LEVODOPA
     Route: 050
  6. ROPINIROLE. [Concomitant]
     Active Substance: ROPINIROLE
     Indication: PARKINSON^S DISEASE
  7. TRAZODONE [Concomitant]
     Active Substance: TRAZODONE HYDROCHLORIDE
     Indication: INSOMNIA

REACTIONS (5)
  - Device dislocation [Recovered/Resolved]
  - Dyskinesia [Recovered/Resolved]
  - Malaise [Recovered/Resolved]
  - Feeling abnormal [Recovered/Resolved]
  - Insomnia [Recovered/Resolved]

NARRATIVE: CASE EVENT DATE: 2019
